FAERS Safety Report 9431785 (Version 1)
Quarter: 2013Q3

REPORT INFORMATION
  Report Type: Spontaneous
  Country: US (occurrence: None)
  Receive Date: 20130726
  Receipt Date: 20130726
  Transmission Date: 20140515
  Serious: Yes (Hospitalization)
  Sender: FDA-Public Use
  Company Number: 2013AP006762

PATIENT
  Age: 60 Year
  Sex: Male
  Weight: 113.32 kg

DRUGS (5)
  1. FERRIPROX [Suspect]
     Indication: HAEMOCHROMATOSIS
     Route: 048
     Dates: start: 20130616, end: 20130619
  2. FERRIPROX [Suspect]
     Indication: TRANSFUSION
     Route: 048
     Dates: start: 20130616, end: 20130619
  3. PRILOSEC /00661201/ [Concomitant]
  4. FOLIC ACID LASIX /00032601/ [Concomitant]
  5. PROMACTA [Concomitant]

REACTIONS (3)
  - Clostridium difficile infection [None]
  - Dehydration [None]
  - Weight decreased [None]
